FAERS Safety Report 7351111-2 (Version None)
Quarter: 2011Q1

REPORT INFORMATION
  Report Type: 
  Country: None (occurrence: None)
  Receive Date: 20110314
  Receipt Date: 20110308
  Transmission Date: 20110831
  Serious: Yes (Other)
  Sender: FDA-Public Use
  Company Number: IT-TEVA-270826ISR

PATIENT
  Sex: Female

DRUGS (1)
  1. CARBOPLATIN [Suspect]
     Indication: ENDOMETRIAL CANCER METASTATIC
     Dates: start: 20110105, end: 20110105

REACTIONS (4)
  - PRURITUS GENERALISED [None]
  - HYPERTENSIVE CRISIS [None]
  - HYPERHIDROSIS [None]
  - RASH [None]
